FAERS Safety Report 5220707-6 (Version None)
Quarter: 2007Q1

REPORT INFORMATION
  Report Type: 
  Country: None (occurrence: None)
  Receive Date: 20070125
  Receipt Date: 20070125
  Transmission Date: 20070707
  Serious: Yes (Hospitalization)
  Sender: FDA-Public Use
  Company Number: None

PATIENT
  Sex: Female
  Weight: 77.1115 kg

DRUGS (1)
  1. PENICILLIN [Suspect]
     Indication: ANTI-INFECTIVE THERAPY
     Dosage: PO
     Route: 048

REACTIONS (2)
  - PRURITUS [None]
  - URTICARIA [None]
